FAERS Safety Report 21593134 (Version 1)
Quarter: 2022Q4

REPORT INFORMATION
  Report Type: Spontaneous
  Country: US (occurrence: None)
  Receive Date: 20221111
  Receipt Date: 20221111
  Transmission Date: 20230112
  Serious: Yes (Hospitalization)
  Sender: FDA-Public Use
  Company Number: None

PATIENT
  Age: 44 Year
  Sex: Male

DRUGS (4)
  1. KOGENATE FS [Suspect]
     Active Substance: ANTIHEMOPHILIC FACTOR, HUMAN RECOMBINANT
     Indication: Factor VIII deficiency
     Dosage: 2000 UNIT??KOGENATE 2054 UNITS/VIAL, 2 VIALS. INFUSE ONE 2054 UNIT VIAL INTRAVENOUSLY ONCE DAILY TO
     Route: 058
     Dates: start: 20221004
  2. CIALIS [Concomitant]
     Active Substance: TADALAFIL
  3. LOSARTAN/HCT TAB 50-12.5 [Concomitant]
  4. VYVANSE CAP 70MG [Concomitant]

REACTIONS (2)
  - Head injury [None]
  - Victim of crime [None]

NARRATIVE: CASE EVENT DATE: 20221030
